FAERS Safety Report 15551911 (Version 2)
Quarter: 2018Q4

REPORT INFORMATION
  Report Type: Spontaneous
  Country: FR (occurrence: FR)
  Receive Date: 20181025
  Receipt Date: 20181112
  Transmission Date: 20190205
  Serious: Yes (Other)
  Sender: FDA-Public Use
  Company Number: FR-SAKK-2018SA291535AA

PATIENT
  Age: 6 Year
  Sex: Male

DRUGS (13)
  1. MELPHALAN. [Suspect]
     Active Substance: MELPHALAN
     Indication: STEM CELL TRANSPLANT
     Dosage: CUMULATIVE DOSE 140 MG/ME2
     Route: 065
  2. INTERFERON GAMMA NOS [Concomitant]
     Active Substance: INTERFERON GAMMA
     Route: 065
  3. CIPROFLOXACIN. [Concomitant]
     Active Substance: CIPROFLOXACIN
     Indication: MYCOBACTERIAL INFECTION
     Route: 065
  4. LINEZOLID. [Concomitant]
     Active Substance: LINEZOLID
     Indication: MYCOBACTERIAL INFECTION
     Route: 065
  5. FLUDARABINE PHOSPHATE. [Suspect]
     Active Substance: FLUDARABINE PHOSPHATE
     Indication: STEM CELL TRANSPLANT
     Dosage: CUMULATIVE DOSE 150 MG/ME2
     Route: 042
  6. CYCLOSPORIN A [Concomitant]
     Active Substance: CYCLOSPORINE
     Indication: PROPHYLAXIS AGAINST GRAFT VERSUS HOST DISEASE
     Route: 065
  7. MYCOPHENOLATE MOFETIL. [Concomitant]
     Active Substance: MYCOPHENOLATE MOFETIL
     Indication: PROPHYLAXIS AGAINST GRAFT VERSUS HOST DISEASE
     Route: 065
  8. ALEMTUZUMAB [Suspect]
     Active Substance: ALEMTUZUMAB
     Indication: STEM CELL TRANSPLANT
     Route: 041
  9. ETHAMBUTOL [Concomitant]
     Active Substance: ETHAMBUTOL HYDROCHLORIDE
     Indication: MYCOBACTERIAL INFECTION
     Route: 065
  10. ANTI-THYMOCYTE GLOBULIN (RABBIT) NOS [Suspect]
     Active Substance: LAPINE T-LYMPHOCYTE IMMUNE GLOBULIN
     Indication: PRODUCT USED FOR UNKNOWN INDICATION
     Route: 065
  11. AMIKACIN. [Concomitant]
     Active Substance: AMIKACIN
     Indication: MYCOBACTERIAL INFECTION
     Route: 065
  12. MOXIFLOXACIN. [Concomitant]
     Active Substance: MOXIFLOXACIN
     Indication: MYCOBACTERIAL INFECTION
     Route: 065
  13. ISONIAZID. [Concomitant]
     Active Substance: ISONIAZID
     Indication: MYCOBACTERIAL INFECTION
     Route: 065

REACTIONS (4)
  - Herpes zoster meningoencephalitis [Unknown]
  - Mucosal inflammation [Unknown]
  - Neutropenia [Unknown]
  - Skin papilloma [Unknown]
